FAERS Safety Report 10272665 (Version 1)
Quarter: 2014Q2

REPORT INFORMATION
  Report Type: Spontaneous
  Country: US (occurrence: None)
  Receive Date: 20140630
  Receipt Date: 20140630
  Transmission Date: 20141212
  Serious: No
  Sender: FDA-Public Use
  Company Number: None

PATIENT
  Age: 63 Year
  Sex: Female
  Weight: 91.17 kg

DRUGS (12)
  1. NITROGLYCERIN TRANSDERMAL SYSTEM [Suspect]
     Indication: ANGINA PECTORIS
     Dosage: APPLY PATCH IN AM, OFF IN PM?ONCE DAILY?APPLIED AS MEDICATED PATCH TO SKIN
     Dates: start: 20140519, end: 20140618
  2. NITROGLYCERIN TRANSDERMAL SYSTEM [Suspect]
     Indication: CARDIAC DISORDER
     Dosage: APPLY PATCH IN AM, OFF IN PM?ONCE DAILY?APPLIED AS MEDICATED PATCH TO SKIN
     Dates: start: 20140519, end: 20140618
  3. DULOXETINE [Concomitant]
  4. LANSOPRAZOLE [Concomitant]
  5. EVOXAC [Concomitant]
  6. METOPROLOL [Concomitant]
  7. AMLODIPINE [Concomitant]
  8. 81MG ASA [Concomitant]
  9. RESTASIS EYE DROPS [Concomitant]
  10. TRAMADOL [Concomitant]
  11. VITAMIN B COMPLEX [Concomitant]
  12. TYLENOL [Concomitant]

REACTIONS (3)
  - Application site erythema [None]
  - Application site pruritus [None]
  - Application site rash [None]
